FAERS Safety Report 23653916 (Version 1)
Quarter: 2024Q1

REPORT INFORMATION
  Report Type: Spontaneous
  Country: US (occurrence: US)
  Receive Date: 20240320
  Receipt Date: 20240320
  Transmission Date: 20240409
  Serious: Yes (Other)
  Sender: FDA-Public Use
  Company Number: US-BRACCO-2024US01106

PATIENT
  Age: 78 Year
  Sex: Male

DRUGS (3)
  1. LUMASON [Suspect]
     Active Substance: SULFUR HEXAFLUORIDE
     Indication: Echocardiogram
     Dosage: 1.5 CC
     Route: 042
     Dates: start: 20240311, end: 20240311
  2. LUMASON [Suspect]
     Active Substance: SULFUR HEXAFLUORIDE
     Indication: Echocardiogram
     Dosage: 1.5 CC
     Route: 042
     Dates: start: 20240311, end: 20240311
  3. LUMASON [Suspect]
     Active Substance: SULFUR HEXAFLUORIDE
     Indication: Echocardiogram
     Dosage: 1.5 CC
     Route: 042
     Dates: start: 20240311, end: 20240311

REACTIONS (4)
  - Agonal respiration [Recovering/Resolving]
  - Burning sensation [Recovering/Resolving]
  - Lethargy [Recovering/Resolving]
  - Heart rate decreased [Recovering/Resolving]

NARRATIVE: CASE EVENT DATE: 20240311
